FAERS Safety Report 9329813 (Version 1)
Quarter: 2013Q2

REPORT INFORMATION
  Report Type: Spontaneous
  Country: US (occurrence: US)
  Receive Date: 20130604
  Receipt Date: 20130604
  Transmission Date: 20140414
  Serious: No
  Sender: FDA-Public Use
  Company Number: US-ASTRAZENECA-2013SE35349

PATIENT
  Age: 59 Year
  Sex: Female

DRUGS (6)
  1. CRESTOR [Suspect]
     Indication: BLOOD CHOLESTEROL INCREASED
     Route: 048
     Dates: end: 201207
  2. HUMIRA [Suspect]
     Indication: PSORIATIC ARTHROPATHY
     Route: 058
     Dates: start: 2005, end: 200703
  3. HUMIRA [Suspect]
     Indication: ARTHRITIS
     Route: 058
     Dates: start: 2005, end: 200703
  4. HUMIRA [Suspect]
     Indication: PSORIATIC ARTHROPATHY
     Route: 058
     Dates: start: 200703
  5. HUMIRA [Suspect]
     Indication: ARTHRITIS
     Route: 058
     Dates: start: 200703
  6. METHOTREXATE [Suspect]
     Indication: PSORIATIC ARTHROPATHY
     Route: 065
     Dates: start: 2005, end: 201207

REACTIONS (3)
  - Tremor [Recovered/Resolved]
  - Hepatic enzyme abnormal [Unknown]
  - Arthralgia [Unknown]
